FAERS Safety Report 20774066 (Version 1)
Quarter: 2022Q2

REPORT INFORMATION
  Report Type: Spontaneous
  Country: JP (occurrence: JP)
  Receive Date: 20220502
  Receipt Date: 20220502
  Transmission Date: 20220721
  Serious: Yes (Other)
  Sender: FDA-Public Use
  Company Number: JP-OTSUKA-2022_025324

PATIENT
  Sex: Male

DRUGS (2)
  1. ABILIFY [Suspect]
     Active Substance: ARIPIPRAZOLE
     Indication: Depression
     Dosage: UNK
     Route: 048
  2. SULPIRIDE [Concomitant]
     Active Substance: SULPIRIDE
     Indication: Depression
     Dosage: UNK
     Route: 048

REACTIONS (2)
  - Loss of control of legs [Unknown]
  - Dizziness [Unknown]
